FAERS Safety Report 8759898 (Version 1)
Quarter: 2012Q4

REPORT INFORMATION
  Report Type: 
  Country: US (occurrence: US)
  Receive Date: 20120829
  Receipt Date: 20120829
  Transmission Date: 20130627
  Serious: Yes (Hospitalization)
  Sender: FDA-Public Use
  Company Number: US-AMGEN-USASP2012054187

PATIENT
  Age: 63 Year

DRUGS (1)
  1. ENBREL [Suspect]
     Indication: RHEUMATOID ARTHRITIS
     Dosage: UNK UNK, qwk
     Route: 058
     Dates: start: 20021121

REACTIONS (3)
  - Knee arthroplasty [Recovered/Resolved]
  - Pneumonia [Recovered/Resolved]
  - Injection site pain [Not Recovered/Not Resolved]
